FAERS Safety Report 4865495-8 (Version None)
Quarter: 2005Q4

REPORT INFORMATION
  Report Type: 
  Country: None (occurrence: None)
  Receive Date: 20051220
  Receipt Date: 20051206
  Transmission Date: 20060501
  Serious: Yes (Death)
  Sender: FDA-Public Use
  Company Number: 217289

PATIENT
  Age: 50 Year
  Sex: Male

DRUGS (8)
  1. AVASTIN [Suspect]
     Indication: GLIOBLASTOMA
     Dosage: 5 MG/KG, Q2W, INTRAVENOUS
     Route: 042
     Dates: start: 20050818, end: 20050818
  2. CPT-11 (IRINOTECAN HYDROCHLORIDE) [Concomitant]
  3. PROTONIX [Concomitant]
  4. TEMOZOLOMIDE [Concomitant]
  5. REGLAN [Concomitant]
  6. DEXAMETHASONE [Concomitant]
  7. MS CONTIN [Concomitant]
  8. METOPROLOL TARTRATE [Concomitant]

REACTIONS (6)
  - CARDIAC ARREST [None]
  - FALL [None]
  - FATIGUE [None]
  - PHARMACEUTICAL PRODUCT COMPLAINT [None]
  - THERAPY NON-RESPONDER [None]
  - VENTRICULAR FIBRILLATION [None]
